FAERS Safety Report 9671974 (Version 1)
Quarter: 2013Q4

REPORT INFORMATION
  Report Type: Spontaneous
  Country: US (occurrence: US)
  Receive Date: 20131106
  Receipt Date: 20131106
  Transmission Date: 20140711
  Serious: Yes (Other)
  Sender: FDA-Public Use
  Company Number: US-WATSON-2013-19551

PATIENT
  Sex: Male

DRUGS (4)
  1. METHYLPHENIDATE HCL ER (WATSON LABORATORIES) [Suspect]
     Indication: GENERALISED ANXIETY DISORDER
     Dosage: 54 MG, UNKNOWN
     Route: 065
  2. METHYLPHENIDATE HCL ER (WATSON LABORATORIES) [Suspect]
     Indication: ATTENTION DEFICIT/HYPERACTIVITY DISORDER
  3. METHYLPHENIDATE [Suspect]
     Indication: GENERALISED ANXIETY DISORDER
     Dosage: 18 MG, UNKNOWN
     Route: 065
  4. METHYLPHENIDATE [Suspect]
     Indication: ATTENTION DEFICIT/HYPERACTIVITY DISORDER

REACTIONS (7)
  - Obsessive-compulsive disorder [Recovering/Resolving]
  - Memory impairment [Recovering/Resolving]
  - Agitation [Recovered/Resolved]
  - Photosensitivity reaction [Recovered/Resolved]
  - Confusional state [Recovering/Resolving]
  - Blood pressure increased [Recovered/Resolved]
  - Heart rate increased [Recovered/Resolved]
